FAERS Safety Report 7291480-5 (Version None)
Quarter: 2011Q1

REPORT INFORMATION
  Report Type: 
  Country: None (occurrence: None)
  Receive Date: 20110214
  Receipt Date: 20110203
  Transmission Date: 20110831
  Serious: Yes (Other)
  Sender: FDA-Public Use
  Company Number: JP-ELI_LILLY_AND_COMPANY-JP201102000719

PATIENT
  Age: 60 Year
  Sex: Female

DRUGS (5)
  1. SELENICA-R [Concomitant]
  2. BUFFERIN [Concomitant]
  3. ZYPREXA [Suspect]
     Dosage: 5 MG, DAILY (1/D)
     Route: 048
  4. PHENOBAL [Concomitant]
  5. ZYPREXA [Suspect]
     Indication: SCHIZOPHRENIA
     Dosage: 10 MG, DAILY (1/D)
     Route: 048

REACTIONS (1)
  - HYPOKALAEMIA [None]
